FAERS Safety Report 9083593 (Version 1)
Quarter: 2013Q1

REPORT INFORMATION
  Report Type: Report from Study
  Country: US (occurrence: US)
  Receive Date: 20130130
  Receipt Date: 20130130
  Transmission Date: 20140127
  Serious: No
  Sender: FDA-Public Use
  Company Number: US-ABBOTT-12P-163-0981583-00

PATIENT
  Sex: Female

DRUGS (5)
  1. HUMIRA [Suspect]
     Indication: CROHN^S DISEASE
     Dosage: 2 PENS DAY 1
     Route: 058
     Dates: start: 20120907, end: 20120907
  2. HUMIRA [Suspect]
     Dosage: 2 PENS DAY 2
     Route: 058
     Dates: start: 20120908, end: 20120908
  3. HUMIRA [Suspect]
     Dosage: 2 PENS DAY 15
     Route: 058
  4. HUMIRA [Suspect]
     Dosage: 1 PEN DAY 29
     Route: 058
  5. HUMIRA [Suspect]
     Route: 058

REACTIONS (4)
  - Rhinorrhoea [Unknown]
  - Injection site pain [Unknown]
  - Injection site pain [Unknown]
  - Oropharyngeal pain [Unknown]
